FAERS Safety Report 9578686 (Version 1)
Quarter: 2013Q4

REPORT INFORMATION
  Report Type: Spontaneous
  Country: US (occurrence: US)
  Receive Date: 20131001
  Receipt Date: 20131001
  Transmission Date: 20140711
  Serious: No
  Sender: FDA-Public Use
  Company Number: US-AMGEN-USASP2013014574

PATIENT
  Age: 47 Year
  Sex: Female
  Weight: 77.1 kg

DRUGS (8)
  1. ENBREL [Suspect]
     Indication: PSORIATIC ARTHROPATHY
     Dosage: 50 MG, QWK
     Route: 058
  2. GARLIC                             /01570501/ [Concomitant]
     Dosage: 300 MG, UNK
  3. CINNAMON                           /01647501/ [Concomitant]
     Dosage: 500 MG, UNK
  4. NAPROSYN                           /00256201/ [Concomitant]
     Dosage: 250 MG, UNK
  5. NORVASC [Concomitant]
     Dosage: 10 MG, UNK
  6. VITAMIN D                          /00107901/ [Concomitant]
     Dosage: 400 UNIT, UNK
  7. FISH OIL [Concomitant]
     Dosage: UNK
  8. ASPIRIN LOW [Concomitant]
     Dosage: 81 MG EC

REACTIONS (5)
  - Weight increased [Unknown]
  - Weight decreased [Unknown]
  - Decreased activity [Unknown]
  - Injection site swelling [Unknown]
  - Injection site rash [Unknown]
